FAERS Safety Report 6066959-4 (Version None)
Quarter: 2009Q1

REPORT INFORMATION
  Report Type: 
  Country: None (occurrence: None)
  Receive Date: 20090205
  Receipt Date: 20081223
  Transmission Date: 20090719
  Serious: No
  Sender: FDA-Public Use
  Company Number: US-ABBOTT-08P-163-0495228-00

PATIENT
  Sex: Male
  Weight: 81.72 kg

DRUGS (1)
  1. VICODIN [Suspect]
     Indication: POSTOPERATIVE ANALGESIA
     Dates: start: 20080901, end: 20080901

REACTIONS (1)
  - NAUSEA [None]
